FAERS Safety Report 9266744 (Version 1)
Quarter: 2013Q2

REPORT INFORMATION
  Report Type: Spontaneous
  Country: FR (occurrence: FR)
  Receive Date: 20130502
  Receipt Date: 20130502
  Transmission Date: 20140414
  Serious: Yes (Other)
  Sender: FDA-Public Use
  Company Number: FR-PFIZER INC-2013130797

PATIENT
  Age: 29 Year
  Sex: Female

DRUGS (6)
  1. SOLU-MEDROL [Suspect]
     Indication: MULTIPLE SCLEROSIS
     Dosage: 1 G, 1X/DAY, IN COURSES OF 4 DAYS MONTHLY
     Route: 041
     Dates: end: 20130408
  2. DIFFU K [Concomitant]
  3. MOPRAL [Concomitant]
  4. MELODIA [Concomitant]
  5. EFFEXOR [Concomitant]
  6. TYSABRI [Concomitant]
     Dosage: ONCE  MONTHLY

REACTIONS (2)
  - Urticaria [Recovered/Resolved]
  - Lip oedema [Recovered/Resolved]
